FAERS Safety Report 10705634 (Version 2)
Quarter: 2015Q1

REPORT INFORMATION
  Report Type: Spontaneous
  Country: US (occurrence: US)
  Receive Date: 20150112
  Receipt Date: 20150112
  Transmission Date: 20150721
  Serious: No
  Sender: FDA-Public Use
  Company Number: US-GLAXOSMITHKLINE-A1077792A

PATIENT

DRUGS (1)
  1. PROMACTA [Suspect]
     Active Substance: ELTROMBOPAG OLAMINE
     Indication: IMMUNE THROMBOCYTOPENIC PURPURA
     Dosage: 50 MG25 MG ON FOLLOW-UP12.5 MG ON FOLLOW-UP
     Route: 065
     Dates: start: 20140516

REACTIONS (4)
  - Diarrhoea [Unknown]
  - Pain in extremity [Unknown]
  - Alopecia [Unknown]
  - Arthralgia [Unknown]

NARRATIVE: CASE EVENT DATE: 2014
